FAERS Safety Report 4462305-8 (Version None)
Quarter: 2004Q3

REPORT INFORMATION
  Report Type: 
  Country: None (occurrence: None)
  Receive Date: 20040924
  Receipt Date: 20040920
  Transmission Date: 20050211
  Serious: Yes (Other)
  Sender: FDA-Public Use
  Company Number: AZAUS200400075

PATIENT

DRUGS (1)
  1. VIDAZA [Suspect]
     Dosage: SUBCUTANEOUS
     Route: 058

REACTIONS (1)
  - HAEMOLYTIC URAEMIC SYNDROME [None]
